FAERS Safety Report 7356986 (Version 7)
Quarter: 2014Q2

REPORT INFORMATION
  Report Type: Report from Study
  Country: US (occurrence: US)
  Receive Date: 20100416
  Receipt Date: 20140620
  Transmission Date: 20141212
  Serious: Yes (Hospitalization)
  Sender: FDA-Public Use
  Company Number: US-ALEXION-A201000391

PATIENT
  Age: 17 Year
  Sex: Female

DRUGS (6)
  1. SOLIRIS [Suspect]
     Indication: PAROXYSMAL NOCTURNAL HAEMOGLOBINURIA
     Dosage: 600 MG, QW
     Route: 042
     Dates: start: 20100211, end: 20100304
  2. SOLIRIS [Suspect]
     Indication: OFF LABEL USE
     Dosage: 900 MG, Q2W
     Route: 042
     Dates: start: 20100311
  3. SOLIRIS [Suspect]
     Dosage: UNK
     Route: 042
     Dates: start: 20100525
  4. PROVERA                            /00115201/ [Concomitant]
     Dosage: 10 MG, QD
  5. TYLENOL                            /00020001/ [Concomitant]
     Indication: PREMEDICATION
     Dosage: 600 MG, UNK
  6. BENADRYL                           /00000402/ [Concomitant]
     Indication: PREMEDICATION

REACTIONS (2)
  - Anaemia [Unknown]
  - Headache [Not Recovered/Not Resolved]
